FAERS Safety Report 6412145-5 (Version None)
Quarter: 2009Q4

REPORT INFORMATION
  Report Type: 
  Country: None (occurrence: None)
  Receive Date: 20091023
  Receipt Date: 20091019
  Transmission Date: 20100525
  Serious: Yes (Hospitalization, Congenital Anomaly)
  Sender: FDA-Public Use
  Company Number: A0679467A

PATIENT
  Sex: Female
  Weight: 2.8 kg

DRUGS (11)
  1. PAXIL CR [Suspect]
     Indication: ANXIETY
     Dosage: 25MG PER DAY
     Dates: start: 20020101, end: 20060101
  2. PAROXETINE HCL [Suspect]
     Indication: DEPRESSION
     Dosage: 10MG AS DIRECTED
     Dates: start: 20040401
  3. VITAMIN TAB [Concomitant]
  4. CHROMAGEN [Concomitant]
  5. ADVAIR DISKUS 100/50 [Concomitant]
  6. STEROID [Concomitant]
  7. PREDNISONE [Concomitant]
  8. PULMICORT [Concomitant]
  9. WELLBUTRIN [Concomitant]
  10. AZITHROMYCIN [Concomitant]
     Dates: start: 20040501
  11. CEFTRIAXONE [Concomitant]
     Dates: start: 20040501

REACTIONS (3)
  - ATRIAL SEPTAL DEFECT [None]
  - DRUG EXPOSURE DURING PREGNANCY [None]
  - PULMONARY VALVE STENOSIS [None]
